FAERS Safety Report 16260742 (Version 1)
Quarter: 2019Q2

REPORT INFORMATION
  Report Type: Spontaneous
  Country: US (occurrence: US)
  Receive Date: 20190501
  Receipt Date: 20190501
  Transmission Date: 20190711
  Serious: Yes (Other)
  Sender: FDA-Public Use
  Company Number: US-PFIZER INC-2019171209

PATIENT
  Sex: Female

DRUGS (2)
  1. CHAPSTICK CLASSIC ORIGINAL [Suspect]
     Active Substance: PETROLATUM
     Dosage: UNK
  2. CHAPSTICK CLASSIC ORIGINAL [Suspect]
     Active Substance: PETROLATUM

REACTIONS (1)
  - Coeliac disease [Unknown]
